FAERS Safety Report 9794129 (Version 3)
Quarter: 2014Q1

REPORT INFORMATION
  Report Type: Spontaneous
  Country: US (occurrence: US)
  Receive Date: 20140102
  Receipt Date: 20140307
  Transmission Date: 20141002
  Serious: No
  Sender: FDA-Public Use
  Company Number: US-AMGEN-USASP2013089100

PATIENT
  Age: 65 Year
  Sex: Female
  Weight: 112.93 kg

DRUGS (17)
  1. ENBREL [Suspect]
     Indication: PSORIATIC ARTHROPATHY
     Dosage: 50 MG, 2 TIMES/WK
     Route: 058
     Dates: start: 20111222
  2. ENBREL [Suspect]
     Indication: PSORIASIS
     Dosage: UNK
     Route: 065
  3. ENBREL [Suspect]
     Dosage: UNK
     Route: 065
  4. CHLORTHALIDONE [Concomitant]
     Dosage: UNK
  5. LOVASTATIN [Concomitant]
     Dosage: UNK
  6. CYANOCOBALAMIN [Concomitant]
     Dosage: UNK
  7. METFORMIN HCL [Concomitant]
     Dosage: UNK
  8. ATENOLOL [Concomitant]
     Dosage: UNK
  9. CLOBETASOL PROPIONATE [Concomitant]
     Dosage: UNK
     Route: 061
  10. B COMPLEX                          /00212701/ [Concomitant]
     Dosage: UNK
  11. CO Q10 [Concomitant]
     Dosage: UNK
  12. ECOTRIN [Concomitant]
     Dosage: UNK
  13. GARLIC                             /01570501/ [Concomitant]
     Dosage: UNK
  14. LYSINE [Concomitant]
     Dosage: UNK
  15. VIT C [Concomitant]
     Dosage: UNK
  16. VIT D [Concomitant]
     Dosage: UNK
  17. VITAMIN E [Concomitant]
     Dosage: UNK

REACTIONS (17)
  - Fall [Unknown]
  - Limb discomfort [Not Recovered/Not Resolved]
  - Contusion [Not Recovered/Not Resolved]
  - Local swelling [Unknown]
  - Pain [Unknown]
  - Osteoarthritis [Unknown]
  - Chondropathy [Not Recovered/Not Resolved]
  - Ingrowing nail [Recovered/Resolved]
  - Erythema [Not Recovered/Not Resolved]
  - Feeling hot [Not Recovered/Not Resolved]
  - Pain in extremity [Unknown]
  - Arthralgia [Unknown]
  - Blood pressure increased [Unknown]
  - Back pain [Unknown]
  - Neck pain [Unknown]
  - Arthritis [Unknown]
  - Psoriasis [Unknown]
